FAERS Safety Report 19054296 (Version 1)
Quarter: 2021Q1

REPORT INFORMATION
  Report Type: Spontaneous
  Country: NL (occurrence: NO)
  Receive Date: 20210324
  Receipt Date: 20210324
  Transmission Date: 20210420
  Serious: Yes (Hospitalization, Disabling)
  Sender: FDA-Public Use
  Company Number: NO-FRESENIUS KABI-FK202102811

PATIENT
  Age: 70 Year
  Sex: Female
  Weight: 79.5 kg

DRUGS (22)
  1. ATORVASTATIN CALCIUM. [Concomitant]
     Active Substance: ATORVASTATIN CALCIUM
     Indication: BLOOD CHOLESTEROL INCREASED
     Route: 048
  2. DEXAMETHASONE. [Concomitant]
     Active Substance: DEXAMETHASONE
     Indication: PREMEDICATION
     Dosage: 4 MG X 2 THE DAY BEFORE CHEMOTHERAPY, THE FOLLOWING DAY AND THE DAY AFTER CHEMOTHERAPY
     Route: 048
  3. CARBOPLATIN (MANUFACTURER UNKNOWN) [Suspect]
     Active Substance: CARBOPLATIN
     Indication: NON-SMALL CELL LUNG CANCER METASTATIC
     Dosage: AUC 5 = 610 MG?TWO CYCLES
     Route: 042
     Dates: start: 20200624, end: 202008
  4. SODIUM PICOSULFATE [Concomitant]
     Active Substance: SODIUM PICOSULFATE
     Indication: CONSTIPATION
     Dosage: 5?15 DROPS WHEN NEEDED WHEN DUPHALAC IS NOT ENOUGH.
     Route: 048
  5. HYDROXOCOBALAMIN [Concomitant]
     Active Substance: HYDROXOCOBALAMIN
     Indication: VITAMIN B12 DEFICIENCY
     Dosage: 1 DOSE PER 9TH WEEK UNTIL 3 WEEKS AFTER THE LAST CYCLE?VITAMIN B12 DEPOT
     Route: 030
  6. ONDANSETRON [Concomitant]
     Active Substance: ONDANSETRON
     Indication: NAUSEA
     Dosage: 8 MG X 2 DURING THE CHEMOTHERAPY AND THEREAFTER 1?2 TIMES PER DAY IF NEEDED
     Route: 048
  7. LISINOPRIL. [Concomitant]
     Active Substance: LISINOPRIL
     Indication: HYPERTENSION
     Route: 048
  8. ACETYLCYSTEINE. [Concomitant]
     Active Substance: ACETYLCYSTEINE
     Indication: PRODUCT USED FOR UNKNOWN INDICATION
     Dosage: 200 MG WHEN NEEDED UP TO X 3
     Route: 048
  9. PEMETREXED DISODIUM [Suspect]
     Active Substance: PEMETREXED DISODIUM
     Indication: NON-SMALL CELL LUNG CANCER METASTATIC
     Dosage: 500 MG/M2 = 900 MG?TWO CYCLES
     Route: 015
     Dates: start: 20200624, end: 202008
  10. FUROSEMIDE. [Concomitant]
     Active Substance: FUROSEMIDE
     Indication: DIURETIC THERAPY
     Dosage: 20 MG SOMETIMES, AS INSTRUCTED BY THE DOCTOR
     Route: 048
  11. CODEINE PHOSPHATE [Concomitant]
     Active Substance: CODEINE PHOSPHATE
     Indication: COUGH
     Dosage: 25 MG EVENING WHEN NEEDED?CODEINE PHOSPHATE HEMIHYDRATE)
     Route: 048
  12. PEMBROLIZUMAB. [Concomitant]
     Active Substance: PEMBROLIZUMAB
     Indication: NON-SMALL CELL LUNG CANCER METASTATIC
     Dosage: TWO CYCLES
     Route: 042
     Dates: start: 20200624, end: 202008
  13. ATORVASTATIN CALCIUM/EZETIMIBE [Concomitant]
     Indication: BLOOD CHOLESTEROL INCREASED
     Dosage: ATORVASTATIN; STRENGTH: 40 MG?EZETIMIBE; STRENGTH: 10 MG
     Route: 048
  14. GLIMEPIRIDE. [Concomitant]
     Active Substance: GLIMEPIRIDE
     Indication: TYPE 2 DIABETES MELLITUS
     Dosage: 2 TABLETS OF 2 MG IN THE MORNING (DOSE INCREASED)
     Route: 048
  15. EZETIMIBE. [Concomitant]
     Active Substance: EZETIMIBE
     Indication: BLOOD CHOLESTEROL INCREASED
     Route: 048
  16. TRANEXAMIC ACID. [Concomitant]
     Active Substance: TRANEXAMIC ACID
     Indication: HAEMORRHAGE PROPHYLAXIS
     Dosage: 500 MG UP TO X 3
     Route: 048
  17. ZOPICLONE [Concomitant]
     Active Substance: ZOPICLONE
     Indication: INSOMNIA
     Dosage: 7.5 MG IN THE EVENING
     Route: 048
  18. ACETYLSALICYLIC ACID [Concomitant]
     Active Substance: ASPIRIN
     Indication: PRODUCT USED FOR UNKNOWN INDICATION
     Dosage: ALBYL?E
     Route: 048
     Dates: start: 20200831
  19. PALONOSETRON HYDROCHLORIDE/NETUPITANT [Concomitant]
     Active Substance: NETUPITANT\PALONOSETRON HYDROCHLORIDE
     Indication: NAUSEA
     Dosage: 1 CAPSULE 1 HOUR BEFORE CHEMOTHERAPY?NETUPITANT: STRENGTH: 300 MG?PALONOSETRON: STRENGTH: 0.5 MG
     Route: 048
     Dates: start: 202008
  20. METOCLOPRAMIDE HYDROCHLORIDE. [Concomitant]
     Active Substance: METOCLOPRAMIDE HYDROCHLORIDE
     Indication: NAUSEA
     Dosage: 10 MG UP TO X 3
     Route: 048
  21. FOLIC ACID. [Concomitant]
     Active Substance: FOLIC ACID
     Indication: VITAMIN SUPPLEMENTATION
     Dosage: 1 MG X 1 UNTIL 3 WEEKS AFTER THE LAST CYCLE
     Route: 048
  22. LACTULOSE. [Concomitant]
     Active Substance: LACTULOSE
     Indication: CONSTIPATION
     Dosage: 10?15 ML WHEN NEEDED, MAX X 3
     Route: 048

REACTIONS (4)
  - Leg amputation [Recovered/Resolved with Sequelae]
  - Leg amputation [Recovered/Resolved with Sequelae]
  - Arteriosclerosis [Recovered/Resolved with Sequelae]
  - Febrile neutropenia [Recovered/Resolved]

NARRATIVE: CASE EVENT DATE: 20200729
